FAERS Safety Report 5827389-0 (Version None)
Quarter: 2008Q3

REPORT INFORMATION
  Report Type: 
  Country: None (occurrence: None)
  Receive Date: 20080730
  Receipt Date: 20080104
  Transmission Date: 20090109
  Serious: No
  Sender: FDA-Public Use
  Company Number: US-BAUSCH-2008BL000053

PATIENT
  Age: 48 Year
  Sex: Female

DRUGS (2)
  1. PREDNISOLONE SODIUM PHOSPHATE [Suspect]
     Indication: HERPES ZOSTER OPHTHALMIC
     Route: 047
     Dates: start: 20080104, end: 20080104
  2. COSOPT [Concomitant]
     Indication: GLAUCOMA
     Route: 047

REACTIONS (1)
  - HYPOAESTHESIA ORAL [None]
